FAERS Safety Report 9743207 (Version 2)
Quarter: 2013Q4

REPORT INFORMATION
  Report Type: Spontaneous
  Country: US (occurrence: US)
  Receive Date: 20131210
  Receipt Date: 20131210
  Transmission Date: 20140711
  Serious: No
  Sender: FDA-Public Use
  Company Number: US-GILEAD-2009-0024908

PATIENT
  Age: 71 Year
  Sex: Female
  Weight: 51.71 kg

DRUGS (18)
  1. LETAIRIS [Suspect]
     Indication: PULMONARY ARTERIAL HYPERTENSION
     Route: 048
     Dates: start: 20091002, end: 20091026
  2. WARFARIN [Concomitant]
  3. DIGOXIN [Concomitant]
  4. OXYGEN [Concomitant]
  5. ADVAIR [Concomitant]
  6. FEXOFENADINE [Concomitant]
  7. CELEBREX [Concomitant]
  8. AZATHIOPRINE [Concomitant]
  9. PREDNISONE [Concomitant]
  10. TRAZODONE [Concomitant]
  11. FOSAMAX [Concomitant]
  12. AMBIEN [Concomitant]
  13. XYZAL [Concomitant]
  14. PREMPRO [Concomitant]
  15. ARAVA [Concomitant]
  16. NEXIUM [Concomitant]
  17. LEVOTHYROXINE [Concomitant]
  18. EVOXAC [Concomitant]

REACTIONS (2)
  - Fluid overload [Recovering/Resolving]
  - Oedema [Recovering/Resolving]
